FAERS Safety Report 21165953 (Version 1)
Quarter: 2022Q3

REPORT INFORMATION
  Report Type: Spontaneous
  Country: US (occurrence: US)
  Receive Date: 20220803
  Receipt Date: 20220803
  Transmission Date: 20221027
  Serious: Yes (Life-Threatening, Other)
  Sender: FDA-Public Use
  Company Number: US-drreddys-LIT/USA/22/0152985

PATIENT
  Age: 58 Year
  Sex: Female

DRUGS (15)
  1. DOXORUBICIN HYDROCHLORIDE [Suspect]
     Active Substance: DOXORUBICIN HYDROCHLORIDE
     Indication: Ovarian epithelial cancer
     Dates: start: 2019
  2. CISPLATIN [Suspect]
     Active Substance: CISPLATIN
     Indication: Ovarian epithelial cancer
  3. PACLITAXEL [Suspect]
     Active Substance: PACLITAXEL
     Indication: Ovarian epithelial cancer
     Dosage: 3 WEEKS FOR SIX CYCLES
  4. PACLITAXEL [Suspect]
     Active Substance: PACLITAXEL
     Dosage: 6 CYCLES
     Dates: start: 201612
  5. CARBOPLATIN [Suspect]
     Active Substance: CARBOPLATIN
     Indication: Ovarian epithelial cancer
     Dates: start: 201504
  6. CARBOPLATIN [Suspect]
     Active Substance: CARBOPLATIN
     Dates: start: 201801
  7. CYCLOPHOSPHAMIDE [Suspect]
     Active Substance: CYCLOPHOSPHAMIDE
     Indication: Ovarian epithelial cancer
     Route: 048
  8. CYCLOPHOSPHAMIDE [Suspect]
     Active Substance: CYCLOPHOSPHAMIDE
     Dosage: BUT RELAPSED AFTER RECEIVING 2 CYCLES
  9. NIRAPARIB [Suspect]
     Active Substance: NIRAPARIB
     Indication: Ovarian epithelial cancer
     Dosage: 2 CYCLES
  10. BEVACIZUMAB [Suspect]
     Active Substance: BEVACIZUMAB
     Indication: Ovarian epithelial cancer
  11. BEVACIZUMAB [Suspect]
     Active Substance: BEVACIZUMAB
     Dates: start: 201612
  12. BEVACIZUMAB [Suspect]
     Active Substance: BEVACIZUMAB
     Dates: start: 201904
  13. PEMBROLIZUMAB [Suspect]
     Active Substance: PEMBROLIZUMAB
     Indication: Ovarian epithelial cancer
     Route: 042
  14. TAMRINTAMAB PAMOZIRINE [Suspect]
     Active Substance: TAMRINTAMAB PAMOZIRINE
     Indication: Ovarian epithelial cancer
     Dosage: 0.025-0.4 MG/KG EVERY 3 WEEKS FOR THREE CYCLES IN JANUARY 2018
     Dates: start: 201801
  15. DOXORUBICIN [Concomitant]
     Active Substance: DOXORUBICIN
     Indication: Ovarian epithelial cancer
     Dates: start: 201504

REACTIONS (2)
  - Drug ineffective [Unknown]
  - Disease progression [Unknown]
